FAERS Safety Report 7465062-6 (Version None)
Quarter: 2011Q2

REPORT INFORMATION
  Report Type: 
  Country: None (occurrence: None)
  Receive Date: 20110505
  Receipt Date: 20110505
  Transmission Date: 20111010
  Serious: Yes (Disabling, Other)
  Sender: FDA-Public Use
  Company Number: None

PATIENT
  Sex: Male
  Weight: 29.4838 kg

DRUGS (2)
  1. RISPERIDONE [Suspect]
     Indication: ATTENTION DEFICIT/HYPERACTIVITY DISORDER
     Dosage: 25MG 3 TIMES DAILY
     Dates: start: 20090101, end: 20110503
  2. RISPERIDONE [Suspect]
     Indication: BIPOLAR DISORDER
     Dosage: 25MG 3 TIMES DAILY
     Dates: start: 20090101, end: 20110503

REACTIONS (4)
  - DECREASED APPETITE [None]
  - ACTIVITIES OF DAILY LIVING IMPAIRED [None]
  - STARING [None]
  - SOMNOLENCE [None]
